FAERS Safety Report 9016676 (Version 1)
Quarter: 2013Q1

REPORT INFORMATION
  Report Type: Spontaneous
  Country: BE (occurrence: BE)
  Receive Date: 20130117
  Receipt Date: 20130117
  Transmission Date: 20140127
  Serious: Yes (Hospitalization)
  Sender: FDA-Public Use
  Company Number: BE-AMGEN-BELSP2013001718

PATIENT
  Age: 87 Year
  Sex: Female
  Weight: 81 kg

DRUGS (9)
  1. XGEVA [Suspect]
     Indication: METASTASES TO BONE
     Dosage: 120 MG, QMO
     Route: 058
     Dates: start: 20120601
  2. XELODA [Concomitant]
     Indication: BREAST CANCER
     Route: 048
  3. L-THYROXINE                        /00068001/ [Concomitant]
     Indication: HYPOTHYROIDISM
     Dosage: 62.5 MUG, QD
     Route: 048
  4. LIPITOR [Concomitant]
     Indication: HYPERCHOLESTEROLAEMIA
     Dosage: 20 MG, QD
     Route: 048
  5. ASAFLOW [Concomitant]
     Dosage: 80 MG, QD
     Route: 048
  6. SPIRONOLACTONE [Concomitant]
     Dosage: 50 MG, QD
     Route: 048
  7. BEFACT                             /01525301/ [Concomitant]
     Indication: ANAEMIA
     Dosage: 1 PILL, QD
     Route: 048
  8. ZOLPIDEM [Concomitant]
     Indication: INSOMNIA
     Dosage: 5 MG, QD
     Route: 048
  9. INNOHEP [Concomitant]
     Indication: DEEP VEIN THROMBOSIS
     Dosage: 1 IU, QD
     Route: 058

REACTIONS (3)
  - Muscle spasms [Recovered/Resolved]
  - Blood albumin decreased [Recovered/Resolved]
  - Hypocalcaemia [Recovered/Resolved]
